FAERS Safety Report 7240391-X (Version None)
Quarter: 2011Q1

REPORT INFORMATION
  Report Type: 
  Country: None (occurrence: None)
  Receive Date: 20110124
  Receipt Date: 20110113
  Transmission Date: 20110831
  Serious: Yes (Hospitalization)
  Sender: FDA-Public Use
  Company Number: JP-JNJFOC-20101004443

PATIENT
  Sex: Female
  Weight: 42 kg

DRUGS (28)
  1. REMICADE [Suspect]
     Dosage: RECEIVED 1 INFUSION TOTAL
     Route: 042
  2. REMICADE [Suspect]
     Dosage: RECEIVED 1 INFUSION TOTAL
     Route: 042
  3. REMICADE [Suspect]
     Dosage: RECEIVED 1 INFUSION TOTAL
     Route: 042
  4. PREDONINE [Suspect]
     Indication: RHEUMATOID ARTHRITIS
     Route: 048
  5. REMICADE [Suspect]
     Indication: RHEUMATOID ARTHRITIS
     Dosage: RECEIVED 1 INFUSION TOTAL
     Route: 042
  6. REMICADE [Suspect]
     Dosage: RECEIVED 1 INFUSION TOTAL
     Route: 042
  7. REMICADE [Suspect]
     Dosage: RECEIVED 1 INFUSION TOTAL
     Route: 042
  8. METHOTREXATE [Suspect]
     Indication: RHEUMATOID ARTHRITIS
     Route: 048
  9. REMICADE [Suspect]
     Dosage: RECEIVED 1 INFUSION TOTAL
     Route: 042
  10. REMICADE [Suspect]
     Dosage: RECEIVED 1 INFUSION TOTAL
     Route: 042
  11. MYSLEE [Concomitant]
     Indication: INSOMNIA
     Route: 048
  12. MUCOSTA [Concomitant]
     Indication: GASTRITIS
     Route: 048
  13. REMICADE [Suspect]
     Dosage: RECEIVED 1 INFUSION TOTAL
     Route: 042
  14. AMARYL [Concomitant]
     Indication: DIABETES MELLITUS
     Route: 048
  15. FERROUS CITRATE [Concomitant]
     Indication: ANAEMIA
     Route: 048
  16. REMICADE [Suspect]
     Dosage: RECEIVED 1 INFUSION TOTAL
     Route: 042
  17. REMICADE [Suspect]
     Dosage: RECEIVED 1 INFUSION TOTAL
     Route: 042
  18. REMICADE [Suspect]
     Dosage: RECEIVED 1 INFUSION TOTAL
     Route: 042
  19. AMLODIPINE [Concomitant]
     Indication: HYPERTENSION
     Route: 048
  20. DIOVAN [Concomitant]
     Indication: HYPERTENSION
     Route: 048
  21. REMICADE [Suspect]
     Dosage: RECEIVED 1 INFUSION TOTAL
     Route: 042
  22. METFORMIN HYDROCHLORIDE [Concomitant]
     Indication: HYPERLIPIDAEMIA
     Route: 048
  23. METFORMIN HCL [Concomitant]
     Indication: DIABETES MELLITUS
     Route: 048
  24. REMICADE [Suspect]
     Dosage: RECEIVED 1 INFUSION TOTAL
     Route: 042
  25. REMICADE [Suspect]
     Dosage: RECEIVED 1 INFUSION TOTAL
     Route: 042
  26. REMICADE [Suspect]
     Dosage: RECEIVED 1 INFUSION TOTAL
     Route: 042
  27. REMICADE [Suspect]
     Dosage: RECEIVED 1 INFUSION TOTAL
     Route: 042
  28. REMICADE [Suspect]
     Dosage: RECEIVED 1 INFUSION TOTAL
     Route: 042

REACTIONS (5)
  - TUBERCULOSIS GASTROINTESTINAL [None]
  - PLEURAL EFFUSION [None]
  - PERITONEAL TUBERCULOSIS [None]
  - PULMONARY TUBERCULOSIS [None]
  - LIVER DISORDER [None]
